FAERS Safety Report 20643694 (Version 1)
Quarter: 2022Q1

REPORT INFORMATION
  Report Type: Spontaneous
  Country: US (occurrence: US)
  Receive Date: 20220328
  Receipt Date: 20220328
  Transmission Date: 20220423
  Serious: No
  Sender: FDA-Public Use
  Company Number: US-JNJFOC-20220346061

PATIENT

DRUGS (1)
  1. IMODIUM MULTI-SYMPTOM RELIEF [Suspect]
     Active Substance: DIMETHICONE\LOPERAMIDE HYDROCHLORIDE
     Indication: Constipation
     Dosage: USING FOR SEVERAL WEEKS
     Route: 065

REACTIONS (4)
  - Wrong technique in product usage process [Unknown]
  - Product size issue [Unknown]
  - Product use in unapproved indication [Unknown]
  - Off label use [Unknown]
